FAERS Safety Report 14137495 (Version 1)
Quarter: 2017Q4

REPORT INFORMATION
  Report Type: Spontaneous
  Country: NO (occurrence: NO)
  Receive Date: 20171027
  Receipt Date: 20171027
  Transmission Date: 20180321
  Serious: Yes (Hospitalization, Other)
  Sender: FDA-Public Use
  Company Number: NO-PFIZER INC-2017462137

PATIENT
  Age: 76 Year
  Sex: Female

DRUGS (10)
  1. BRILIQUE [Concomitant]
     Active Substance: TICAGRELOR
     Indication: ACUTE MYOCARDIAL INFARCTION
     Dosage: 90 MG, 2X/DAY
     Route: 048
     Dates: start: 201706
  2. TRAJENTA [Concomitant]
     Active Substance: LINAGLIPTIN
     Indication: DIABETES MELLITUS
     Dosage: 5 MG, 1X/DAY
     Route: 048
  3. SELEXID (PEVMECILLINAM HYDROCHLORIDE) [Concomitant]
     Active Substance: AMDINOCILLIN PIVOXIL HYDROCHLORIDE
     Dosage: TREATMENT GIVEN FOR ONE WEEK
     Dates: start: 201709
  4. LIPITOR [Suspect]
     Active Substance: ATORVASTATIN CALCIUM
     Indication: HYPERCHOLESTEROLAEMIA
     Dosage: 80 MG, 1X/DAY
     Route: 048
     Dates: start: 201706, end: 201709
  5. LIPITOR [Suspect]
     Active Substance: ATORVASTATIN CALCIUM
     Indication: ACUTE MYOCARDIAL INFARCTION
     Dosage: 20 MG, DAILY
     Route: 048
  6. ALBYL-E [Concomitant]
     Active Substance: ASPIRIN\MAGNESIUM OXIDE
     Indication: ACUTE MYOCARDIAL INFARCTION
     Dosage: 75 MG, 1X/DAY
     Route: 048
     Dates: start: 201706
  7. COZAAR COMP [Concomitant]
     Active Substance: HYDROCHLOROTHIAZIDE\LOSARTAN POTASSIUM
     Indication: HYPERTENSION
     Dosage: 1 DOSAGE FORM/TABLET CONTAINS 100 MG LOSARTAN AND 25 MG HYDROCHLOROTHIAZIDE
     Route: 048
  8. METOPROLOL SANDOZ [Concomitant]
     Active Substance: METOPROLOL
     Indication: ACUTE MYOCARDIAL INFARCTION
     Dosage: 50 MG, 1X/DAY
     Route: 048
     Dates: start: 201706
  9. NOVORAPID [Concomitant]
     Active Substance: INSULIN ASPART
     Dosage: USED AS PRESCRIBED / NECESSARY
     Route: 058
  10. INSULIN HUMAN [Concomitant]
     Active Substance: INSULIN HUMAN
     Indication: DIABETES MELLITUS
     Dosage: 24 IU, 1X/DAY
     Route: 058

REACTIONS (9)
  - Myalgia [Recovering/Resolving]
  - Dehydration [Recovering/Resolving]
  - Blood creatine phosphokinase increased [Recovering/Resolving]
  - Hepatic enzyme increased [Recovering/Resolving]
  - Pollakiuria [Recovering/Resolving]
  - Muscular weakness [Recovering/Resolving]
  - Gait disturbance [Recovering/Resolving]
  - Rhabdomyolysis [Recovering/Resolving]
  - Acute kidney injury [Recovering/Resolving]

NARRATIVE: CASE EVENT DATE: 201709
